FAERS Safety Report 20392757 (Version 4)
Quarter: 2022Q3

REPORT INFORMATION
  Report Type: Spontaneous
  Country: JP (occurrence: JP)
  Receive Date: 20220128
  Receipt Date: 20220926
  Transmission Date: 20221027
  Serious: Yes (Other)
  Sender: FDA-Public Use
  Company Number: JP-PFIZER INC-202101706450

PATIENT
  Age: 71 Year
  Sex: Male
  Weight: 47 kg

DRUGS (3)
  1. INLYTA [Suspect]
     Active Substance: AXITINIB
     Indication: Metastatic renal cell carcinoma
     Dosage: 5 MG, 2X/DAY
     Route: 048
     Dates: start: 202106
  2. INLYTA [Suspect]
     Active Substance: AXITINIB
     Dosage: 3 MG, 2X/DAY
     Route: 048
  3. BAVENCIO [Concomitant]
     Active Substance: AVELUMAB
     Indication: Metastatic renal cell carcinoma
     Dosage: UNK
     Dates: start: 202106

REACTIONS (4)
  - Pneumothorax [Recovered/Resolved]
  - Deep vein thrombosis [Unknown]
  - Intestinal obstruction [Unknown]
  - Decreased appetite [Recovering/Resolving]

NARRATIVE: CASE EVENT DATE: 20210701
